FAERS Safety Report 4332516-0 (Version None)
Quarter: 2004Q2

REPORT INFORMATION
  Report Type: 
  Country: None (occurrence: None)
  Receive Date: 20040401
  Receipt Date: 20040319
  Transmission Date: 20050107
  Serious: Yes (Hospitalization)
  Sender: FDA-Public Use
  Company Number: BE-SHR-04-022910

PATIENT
  Age: 12 Year
  Sex: 0

DRUGS (1)
  1. BETASERON [Suspect]
     Indication: MULTIPLE SCLEROSIS
     Dosage: 5 ML, SUBCUTANEOUS
     Route: 058

REACTIONS (4)
  - CARDIAC ENZYMES INCREASED [None]
  - HYPOTENSION [None]
  - PULMONARY OEDEMA [None]
  - THROMBOCYTOPENIA [None]
